FAERS Safety Report 23428791 (Version 1)
Quarter: 2024Q1

REPORT INFORMATION
  Report Type: Spontaneous
  Country: US (occurrence: US)
  Receive Date: 20240122
  Receipt Date: 20240122
  Transmission Date: 20240409
  Serious: Yes (Hospitalization, Other)
  Sender: FDA-Public Use
  Company Number: US-DRL-USA-LIT/USA/24/0001005

PATIENT
  Sex: Male

DRUGS (11)
  1. CYCLOPHOSPHAMIDE [Suspect]
     Active Substance: CYCLOPHOSPHAMIDE
     Indication: Autoimmune encephalopathy
  2. CYCLOPHOSPHAMIDE [Suspect]
     Active Substance: CYCLOPHOSPHAMIDE
     Indication: Noninfective encephalitis
  3. CYCLOPHOSPHAMIDE [Suspect]
     Active Substance: CYCLOPHOSPHAMIDE
     Indication: Hypothalamo-pituitary disorder
  4. METHYLPREDNISOLONE [Suspect]
     Active Substance: METHYLPREDNISOLONE
     Indication: Autoimmune encephalopathy
     Route: 042
  5. METHYLPREDNISOLONE [Suspect]
     Active Substance: METHYLPREDNISOLONE
     Indication: Noninfective encephalitis
  6. METHYLPREDNISOLONE [Suspect]
     Active Substance: METHYLPREDNISOLONE
     Indication: Hypothalamo-pituitary disorder
  7. PREDNISONE [Suspect]
     Active Substance: PREDNISONE
     Indication: Autoimmune encephalopathy
     Route: 048
  8. PREDNISONE [Suspect]
     Active Substance: PREDNISONE
     Indication: Noninfective encephalitis
  9. PREDNISONE [Suspect]
     Active Substance: PREDNISONE
     Indication: Hypothalamo-pituitary disorder
  10. TOPIRAMATE [Concomitant]
     Active Substance: TOPIRAMATE
  11. LEVOTHYROXINE SODIUM [Concomitant]
     Active Substance: LEVOTHYROXINE SODIUM

REACTIONS (5)
  - Obesity [Recovered/Resolved]
  - Respiratory distress [Unknown]
  - Adrenal insufficiency [Unknown]
  - Rebound effect [Unknown]
  - Noninfective encephalitis [Unknown]
